FAERS Safety Report 5158249-9 (Version None)
Quarter: 2006Q4

REPORT INFORMATION
  Report Type: 
  Country: None (occurrence: None)
  Receive Date: 20061121
  Receipt Date: 20061121
  Transmission Date: 20070319
  Serious: Yes (Hospitalization)
  Sender: FDA-Public Use
  Company Number: None

PATIENT
  Sex: Female
  Weight: 116 kg

DRUGS (1)
  1. FLUOROURACIL [Suspect]
     Dosage: 14190 MG
     Dates: start: 20040308, end: 20040414

REACTIONS (5)
  - CORONARY ARTERY STENOSIS [None]
  - DYSPNOEA EXERTIONAL [None]
  - MYOCARDIAL ISCHAEMIA [None]
  - STENT OCCLUSION [None]
  - SURGICAL PROCEDURE REPEATED [None]
